FAERS Safety Report 10480639 (Version 1)
Quarter: 2014Q3

REPORT INFORMATION
  Report Type: Spontaneous
  Country: US (occurrence: None)
  Receive Date: 20140904
  Receipt Date: 20140904
  Transmission Date: 20150326
  Serious: No
  Sender: FDA-Public Use
  Company Number: 228387

PATIENT
  Sex: Female

DRUGS (1)
  1. PICATO [Suspect]
     Active Substance: INGENOL MEBUTATE
     Indication: ACTINIC KERATOSIS
     Route: 061
     Dates: start: 20140608, end: 20140609

REACTIONS (5)
  - Application site erythema [None]
  - Application site pain [None]
  - Incorrect drug administration duration [None]
  - Application site erosion [None]
  - Application site vesicles [None]

NARRATIVE: CASE EVENT DATE: 20140608
